FAERS Safety Report 14026057 (Version 2)
Quarter: 2019Q2

REPORT INFORMATION
  Report Type: Spontaneous
  Country: LK (occurrence: LK)
  Receive Date: 20170929
  Receipt Date: 20190409
  Transmission Date: 20190711
  Serious: Yes (Life-Threatening, Hospitalization, Other)
  Sender: FDA-Public Use
  Company Number: LK-PFIZER INC-2017390453

PATIENT
  Age: 21 Year
  Sex: Male

DRUGS (3)
  1. HYDROCORTISONE. [Concomitant]
     Active Substance: HYDROCORTISONE
     Indication: ANAPHYLACTIC REACTION
     Dosage: 200 MG, UNK
     Route: 042
  2. CHLORPHENIRAMINE. [Concomitant]
     Active Substance: CHLORPHENIRAMINE
     Indication: ANAPHYLACTIC REACTION
     Dosage: 10 MG, UNK
     Route: 042
  3. ADRENALINE [Suspect]
     Active Substance: EPINEPHRINE
     Indication: FOOD ALLERGY
     Dosage: 0.5 ML, UNK (1:1000 SOLUTION)
     Route: 030

REACTIONS (1)
  - Myocardial infarction [Recovered/Resolved]
